FAERS Safety Report 20777935 (Version 3)
Quarter: 2022Q2

REPORT INFORMATION
  Report Type: Spontaneous
  Country: PL (occurrence: PL)
  Receive Date: 20220503
  Receipt Date: 20220531
  Transmission Date: 20220721
  Serious: Yes (Hospitalization, Other)
  Sender: FDA-Public Use
  Company Number: PL-TEVA-2022-PL-2020852

PATIENT
  Age: 25 Year
  Sex: Female

DRUGS (15)
  1. LAMOTRIGINE [Suspect]
     Active Substance: LAMOTRIGINE
     Indication: Mixed anxiety and depressive disorder
     Dosage: 200 MILLIGRAM, QD(200 MILLIGRAM DAILY)
     Route: 065
  2. LAMOTRIGINE [Suspect]
     Active Substance: LAMOTRIGINE
     Indication: Anxiety disorder
  3. LAMOTRIGINE [Suspect]
     Active Substance: LAMOTRIGINE
     Indication: Depression
  4. ZOLPIDEM [Concomitant]
     Active Substance: ZOLPIDEM TARTRATE
     Indication: Mixed anxiety and depressive disorder
     Dosage: 10 MILLIGRAM, QD
     Route: 065
  5. ZOLPIDEM [Concomitant]
     Active Substance: ZOLPIDEM TARTRATE
     Indication: Depression
  6. ZOLPIDEM [Concomitant]
     Active Substance: ZOLPIDEM TARTRATE
     Indication: Anxiety disorder
  7. TRAZODONE [Concomitant]
     Active Substance: TRAZODONE HYDROCHLORIDE
     Indication: Mixed anxiety and depressive disorder
     Dosage: 50 MILLIGRAM, QD
     Route: 065
  8. TRAZODONE [Concomitant]
     Active Substance: TRAZODONE HYDROCHLORIDE
     Indication: Depression
  9. TRAZODONE [Concomitant]
     Active Substance: TRAZODONE HYDROCHLORIDE
     Indication: Anxiety disorder
  10. SULPIRIDE [Concomitant]
     Active Substance: SULPIRIDE
     Indication: Mixed anxiety and depressive disorder
     Dosage: 100 MILLIGRAM, QD
     Route: 065
  11. SULPIRIDE [Concomitant]
     Active Substance: SULPIRIDE
     Indication: Anxiety disorder
  12. SULPIRIDE [Concomitant]
     Active Substance: SULPIRIDE
     Indication: Depression
  13. VENLAFAXINE [Concomitant]
     Active Substance: VENLAFAXINE HYDROCHLORIDE
     Indication: Mixed anxiety and depressive disorder
     Dosage: 75 MILLIGRAM, QD
  14. VENLAFAXINE [Concomitant]
     Active Substance: VENLAFAXINE HYDROCHLORIDE
     Indication: Anxiety disorder
  15. VENLAFAXINE [Concomitant]
     Active Substance: VENLAFAXINE HYDROCHLORIDE
     Indication: Depression

REACTIONS (22)
  - Stevens-Johnson syndrome [Recovering/Resolving]
  - Blister [Recovered/Resolved]
  - Rash erythematous [Recovered/Resolved]
  - Hyperplasia [Recovered/Resolved]
  - Dysphagia [Unknown]
  - Mucosal erosion [Unknown]
  - Conjunctival erosion [Unknown]
  - Oral pain [Unknown]
  - C-reactive protein increased [Recovered/Resolved]
  - Skin lesion [Recovered/Resolved]
  - Affective disorder [Recovered/Resolved]
  - Body temperature increased [Recovered/Resolved]
  - Conjunctival hyperaemia [Recovered/Resolved]
  - Upper respiratory tract infection [Unknown]
  - Lip erosion [Unknown]
  - Hyperthyroidism [Recovered/Resolved]
  - Genital erosion [Unknown]
  - Therapy cessation [Unknown]
  - Euphoric mood [Unknown]
  - Ocular hyperaemia [Unknown]
  - Discomfort [Unknown]
  - Tongue disorder [Unknown]
